FAERS Safety Report 7243990-4 (Version None)
Quarter: 2011Q1

REPORT INFORMATION
  Report Type: 
  Country: None (occurrence: None)
  Receive Date: 20110125
  Receipt Date: 20110112
  Transmission Date: 20110831
  Serious: Yes (Other)
  Sender: FDA-Public Use
  Company Number: US-CELGENEUS-163-21880-10110060

PATIENT
  Sex: Male

DRUGS (7)
  1. NEXIUM [Concomitant]
     Route: 065
  2. ASPIRIN [Concomitant]
     Route: 065
  3. REVLIMID [Suspect]
     Indication: MYELOFIBROSIS
     Route: 048
     Dates: start: 20101004, end: 20101112
  4. HYDREA [Concomitant]
     Indication: MYELOFIBROSIS
     Route: 048
     Dates: start: 20040721
  5. HYDREA [Concomitant]
     Route: 048
  6. PREDNISONE [Concomitant]
     Indication: MYELOFIBROSIS
     Route: 048
     Dates: start: 20101006
  7. VITAMIN B-12 [Concomitant]
     Route: 065

REACTIONS (4)
  - SPLENOMEGALY [None]
  - BACK PAIN [None]
  - DRY MOUTH [None]
  - ANGIOPATHY [None]
